FAERS Safety Report 5373861-X (Version None)
Quarter: 2007Q2

REPORT INFORMATION
  Report Type: 
  Country: None (occurrence: None)
  Receive Date: 20070628
  Receipt Date: 20070619
  Transmission Date: 20071010
  Serious: Yes (Hospitalization)
  Sender: FDA-Public Use
  Company Number: JP-PFIZER INC-2007026849

PATIENT
  Sex: Male
  Weight: 105 kg

DRUGS (1)
  1. UNASYN [Suspect]
     Indication: INFECTION
     Route: 042
     Dates: start: 20070325, end: 20070327

REACTIONS (3)
  - HEPATIC FUNCTION ABNORMAL [None]
  - JAUNDICE [None]
  - RASH [None]
